FAERS Safety Report 13646657 (Version 2)
Quarter: 2017Q2

REPORT INFORMATION
  Report Type: Spontaneous
  Country: US (occurrence: US)
  Receive Date: 20170613
  Receipt Date: 20170616
  Transmission Date: 20170830
  Serious: Yes (Other)
  Sender: FDA-Public Use
  Company Number: US-PFIZER INC-2017254583

PATIENT
  Age: 31 Year
  Sex: Female

DRUGS (2)
  1. DEPO-PROVERA [Suspect]
     Active Substance: MEDROXYPROGESTERONE ACETATE
     Indication: CONTRACEPTION
     Dosage: 104 MG, UNK (Q 12-14 WEEK)
     Route: 058
     Dates: start: 20160725, end: 20161024
  2. DEPO-PROVERA [Suspect]
     Active Substance: MEDROXYPROGESTERONE ACETATE
     Dosage: UNK

REACTIONS (2)
  - Injection site mass [Unknown]
  - Injection site reaction [Unknown]

NARRATIVE: CASE EVENT DATE: 20160725
